FAERS Safety Report 19608291 (Version 7)
Quarter: 2023Q4

REPORT INFORMATION
  Report Type: Spontaneous
  Country: US (occurrence: US)
  Receive Date: 20210726
  Receipt Date: 20231120
  Transmission Date: 20240110
  Serious: Yes (Other)
  Sender: FDA-Public Use
  Company Number: US-BAYER-2021-178964

PATIENT
  Age: 36 Year
  Sex: Female

DRUGS (1)
  1. MIRENA [Suspect]
     Active Substance: LEVONORGESTREL
     Indication: Contraception
     Dosage: 20?G/DAY
     Route: 015
     Dates: start: 20190108, end: 20200226

REACTIONS (16)
  - Suicidal ideation [Recovered/Resolved]
  - Appendicitis [None]
  - Genital haemorrhage [None]
  - Abdominal pain lower [Not Recovered/Not Resolved]
  - Vaginal haemorrhage [Recovered/Resolved]
  - Premenstrual pain [Recovered/Resolved]
  - Medical device discomfort [None]
  - Abdominal distension [Not Recovered/Not Resolved]
  - Pelvic pain [None]
  - Chills [None]
  - Vomiting [None]
  - Incision site complication [None]
  - Serositis [None]
  - Dysmenorrhoea [None]
  - Constipation [None]
  - Procedural pain [None]

NARRATIVE: CASE EVENT DATE: 20190101
